FAERS Safety Report 7900266-7 (Version None)
Quarter: 2011Q4

REPORT INFORMATION
  Report Type: 
  Country: None (occurrence: None)
  Receive Date: 20111104
  Receipt Date: 20111028
  Transmission Date: 20120403
  Serious: Yes (Hospitalization)
  Sender: FDA-Public Use
  Company Number: GER/UKI/11/0021751

PATIENT
  Sex: Male
  Weight: 92.2 kg

DRUGS (6)
  1. HYDROXYZINE [Concomitant]
  2. SIMVASTATIN [Concomitant]
  3. LORATADINE [Concomitant]
  4. CLOBAZAM (CLOBAZAM) [Concomitant]
  5. FERROUS FUMARATE [Concomitant]
  6. LEVETIRACETAM [Suspect]
     Indication: CONVULSION
     Dosage: 750 MG, 1 IN 1 D, ORAL
     Route: 048

REACTIONS (1)
  - DERMATITIS EXFOLIATIVE [None]
